FAERS Safety Report 18582896 (Version 2)
Quarter: 2020Q4

REPORT INFORMATION
  Report Type: Spontaneous
  Country: US (occurrence: US)
  Receive Date: 20201205
  Receipt Date: 20201209
  Transmission Date: 20210114
  Serious: Yes (Hospitalization, Other)
  Sender: FDA-Public Use
  Company Number: US-009507513-2011USA015713

PATIENT
  Age: 807 Month
  Sex: Male

DRUGS (26)
  1. HEPARIN SODIUM. [Concomitant]
     Active Substance: HEPARIN SODIUM
     Dosage: 250 MILLIGRAM
  2. DORIPENEM. [Concomitant]
     Active Substance: DORIPENEM
     Dosage: 100ML  25 Q8
  3. TOPROL XL [Suspect]
     Active Substance: METOPROLOL SUCCINATE
     Dosage: 50 MILLIGRAM, QD
     Route: 048
     Dates: start: 20090312
  4. FLAGYL (METRONIDAZOLE BENZOATE) [Concomitant]
     Active Substance: METRONIDAZOLE BENZOATE
     Dosage: 1000 MILLIGRAM, QD
     Route: 048
  5. MIRALAX [Concomitant]
     Active Substance: POLYETHYLENE GLYCOL 3350
     Dosage: 17 GRAM, QD
     Route: 048
  6. PRAVACHOL [Concomitant]
     Active Substance: PRAVASTATIN SODIUM
     Dosage: 40 MILLIGRAM, QD
     Route: 048
  7. AMOXICILLIN. [Concomitant]
     Active Substance: AMOXICILLIN
     Dosage: 1500 MILLIGRAM, QD
     Route: 048
  8. TRICOR [Concomitant]
     Active Substance: FENOFIBRATE
     Dosage: 145 MILLIGRAM, QD
     Route: 048
  9. AUGMENTIN [Concomitant]
     Active Substance: AMOXICILLIN\CLAVULANATE POTASSIUM
     Dosage: 2 DOSAGE FORM, QD
     Route: 048
  10. HEPARIN SODIUM. [Concomitant]
     Active Substance: HEPARIN SODIUM
     Dosage: ONCE
  11. LOVAZA [Concomitant]
     Active Substance: OMEGA-3-ACID ETHYL ESTERS
     Dosage: 2 GRAM, QD
  12. PRINIVIL [Suspect]
     Active Substance: LISINOPRIL
     Route: 048
  13. FLUNISOLIDE. [Concomitant]
     Active Substance: FLUNISOLIDE
     Dosage: 2 SQUIRTS BID AS NEEDED
  14. ALBUTEROL (+) IPRATROPIUM BROMIDE [Concomitant]
     Active Substance: ALBUTEROL\IPRATROPIUM BROMIDE
     Dosage: 3 ML Q4R
  15. CREON [Concomitant]
     Active Substance: PANCRELIPASE AMYLASE\PANCRELIPASE LIPASE\PANCRELIPASE PROTEASE
     Dosage: 3 DOSAGE FORM, QD
     Route: 048
  16. FISH OIL [Concomitant]
     Active Substance: FISH OIL
     Dosage: 2000 MILLIGRAM, QD
     Route: 048
  17. TRAMADOL HYDROCHLORIDE. [Concomitant]
     Active Substance: TRAMADOL HYDROCHLORIDE
     Dosage: 50 MILLIGRAM, QD
     Route: 048
  18. CELEBREX [Concomitant]
     Active Substance: CELECOXIB
     Dosage: 200 MILLIGRAM, QD
     Route: 048
  19. METRONIDAZOLE. [Concomitant]
     Active Substance: METRONIDAZOLE
     Dosage: 500 MILLIGRAM, QD
     Route: 048
  20. SODIUM CHLORIDE. [Concomitant]
     Active Substance: SODIUM CHLORIDE
     Dosage: 1000 ML Q5H
  21. NASONEX [Concomitant]
     Active Substance: MOMETASONE FUROATE
     Dosage: 2 SPRAYS NA DAILY
  22. COUMADIN [Concomitant]
     Active Substance: WARFARIN SODIUM
  23. AMYLASE (+) LIPASE (+) PROTEASE [Concomitant]
     Dosage: 6 EACH TIDWM
  24. NEXIUM [Suspect]
     Active Substance: ESOMEPRAZOLE MAGNESIUM
     Dosage: 40 MILLIGRAM, QD
     Route: 048
     Dates: start: 20090312
  25. ASPIRIN. [Concomitant]
     Active Substance: ASPIRIN
     Dosage: 81 MILLIGRAM, QD
     Route: 048
  26. SODIUM CHLORIDE. [Concomitant]
     Active Substance: SODIUM CHLORIDE
     Dosage: 1000ML  Q1H1M ONCE

REACTIONS (34)
  - Oedema peripheral [Unknown]
  - Scrotal oedema [Unknown]
  - Enterococcal bacteraemia [Unknown]
  - Diverticulum [Unknown]
  - Anuria [Unknown]
  - Oesophageal stenosis [Unknown]
  - Splenic vein thrombosis [Unknown]
  - Acute kidney injury [Recovering/Resolving]
  - Diarrhoea [Unknown]
  - Leukocytosis [Recovered/Resolved]
  - Gastroenteritis [Unknown]
  - Epistaxis [Unknown]
  - Oedema due to renal disease [Unknown]
  - Portal vein thrombosis [Unknown]
  - Chills [Unknown]
  - Nausea [Unknown]
  - International normalised ratio increased [Unknown]
  - Hyponatraemia [Recovered/Resolved]
  - Aortic aneurysm [Unknown]
  - Sepsis [Unknown]
  - Electrolyte imbalance [Unknown]
  - Malaise [Unknown]
  - Iron deficiency [Unknown]
  - Musculoskeletal stiffness [Unknown]
  - Venous occlusion [Unknown]
  - Hypotension [Unknown]
  - Hypokalaemia [Recovered/Resolved]
  - Hypovolaemia [Unknown]
  - Pneumonia bacterial [Recovered/Resolved]
  - Pyrexia [Unknown]
  - Tremor [Unknown]
  - Rales [Unknown]
  - Anaemia of chronic disease [Unknown]
  - Hiatus hernia [Unknown]

NARRATIVE: CASE EVENT DATE: 201111
